FAERS Safety Report 20877464 (Version 1)
Quarter: 2022Q2

REPORT INFORMATION
  Report Type: Report from Study
  Country: CA (occurrence: CA)
  Receive Date: 20220526
  Receipt Date: 20220526
  Transmission Date: 20220720
  Serious: Yes (Hospitalization)
  Sender: FDA-Public Use
  Company Number: CA-HLS-202201021

PATIENT
  Age: 67 Year
  Sex: Male

DRUGS (1)
  1. CLOZARIL [Suspect]
     Active Substance: CLOZAPINE
     Indication: Product used for unknown indication
     Route: 048
     Dates: start: 20151104

REACTIONS (3)
  - Neutrophil count decreased [Unknown]
  - Bacterial infection [Unknown]
  - White blood cell count decreased [Unknown]

NARRATIVE: CASE EVENT DATE: 20220517
